FAERS Safety Report 13374706 (Version 1)
Quarter: 2017Q1

REPORT INFORMATION
  Report Type: Report from Study
  Country: MX (occurrence: MX)
  Receive Date: 20170327
  Receipt Date: 20170327
  Transmission Date: 20170429
  Serious: Yes (Other)
  Sender: FDA-Public Use
  Company Number: MX-BAYER-2017-016435

PATIENT
  Age: 54 Year
  Sex: Male
  Weight: 58.96 kg

DRUGS (3)
  1. ASPIRIN. [Suspect]
     Active Substance: ASPIRIN
     Indication: HYPERAESTHESIA
     Dosage: CRUSH ASPIRIN, PUT THEM ON WATER AND IMMERSE HIS FEET
  2. NEXAVAR [Suspect]
     Active Substance: SORAFENIB
     Indication: HEPATOCELLULAR CARCINOMA
     Dosage: 600 MG, QD
     Dates: start: 20161222
  3. NEXAVAR [Suspect]
     Active Substance: SORAFENIB
     Indication: HEPATOCELLULAR CARCINOMA
     Dosage: 800 MG DAILY DOSE
     Dates: start: 20161116, end: 201612

REACTIONS (23)
  - Diarrhoea [Recovering/Resolving]
  - Injury [Not Recovered/Not Resolved]
  - Fluid retention [Not Recovered/Not Resolved]
  - Swelling [Not Recovered/Not Resolved]
  - Product use issue [Not Recovered/Not Resolved]
  - Lid sulcus deepened [Not Recovered/Not Resolved]
  - Glossitis [Recovering/Resolving]
  - Pain in extremity [Recovering/Resolving]
  - Dry skin [Recovering/Resolving]
  - Drug ineffective [Not Recovered/Not Resolved]
  - Abdominal pain [Not Recovered/Not Resolved]
  - Peritonitis [Not Recovered/Not Resolved]
  - Tongue disorder [Recovering/Resolving]
  - Gingival bleeding [Recovering/Resolving]
  - Underdose [Recovered/Resolved]
  - Neoplasm progression [Not Recovered/Not Resolved]
  - Headache [Recovering/Resolving]
  - Hyperaesthesia [Not Recovered/Not Resolved]
  - Ulcer [Recovering/Resolving]
  - Metastases to pancreas [Unknown]
  - Faeces discoloured [Not Recovered/Not Resolved]
  - Weight decreased [Not Recovered/Not Resolved]
  - Fatigue [Not Recovered/Not Resolved]

NARRATIVE: CASE EVENT DATE: 20161116
